FAERS Safety Report 10144213 (Version 1)
Quarter: 2014Q2

REPORT INFORMATION
  Report Type: Spontaneous
  Country: US (occurrence: US)
  Receive Date: 20140430
  Receipt Date: 20140430
  Transmission Date: 20141212
  Serious: Yes (Death)
  Sender: FDA-Public Use
  Company Number: US-ASTELLAS-2014US004214

PATIENT
  Sex: Female

DRUGS (2)
  1. TARCEVA [Suspect]
     Indication: TRACHEAL CANCER
     Route: 048
     Dates: start: 20140212
  2. TARCEVA [Suspect]
     Indication: METASTASES TO NERVOUS SYSTEM

REACTIONS (1)
  - Death [Fatal]
